FAERS Safety Report 6483594-4 (Version None)
Quarter: 2009Q4

REPORT INFORMATION
  Report Type: 
  Country: None (occurrence: None)
  Receive Date: 20091209
  Receipt Date: 20091201
  Transmission Date: 20100525
  Serious: Yes (Hospitalization)
  Sender: FDA-Public Use
  Company Number: PHEH2009US15567

PATIENT
  Sex: Male
  Weight: 136.5 kg

DRUGS (2)
  1. EXJADE [Suspect]
     Dosage: 1500 MG, QD
     Route: 048
     Dates: start: 20090925
  2. EXJADE [Suspect]
     Dosage: UNK
     Route: 048

REACTIONS (3)
  - DIARRHOEA [None]
  - INFECTION [None]
  - PNEUMONIA [None]
